FAERS Safety Report 21709027 (Version 1)
Quarter: 2022Q4

REPORT INFORMATION
  Report Type: Report from Study
  Country: GB (occurrence: GB)
  Receive Date: 20221210
  Receipt Date: 20221210
  Transmission Date: 20230113
  Serious: Yes (Other)
  Sender: FDA-Public Use
  Company Number: GB-002147023-NVSC2022GB283217

PATIENT
  Sex: Female

DRUGS (1)
  1. COSENTYX [Suspect]
     Active Substance: SECUKINUMAB
     Indication: Ankylosing spondylitis
     Dosage: 150 MG, QW (ONE PEN) ON WEEKS 0, 1, 2, 3 AND 4 FOLLOWED BY ONCE MONTHLY THEREAFTER AS DIRECTED)
     Route: 058
     Dates: start: 20221126

REACTIONS (9)
  - Hypertension [Not Recovered/Not Resolved]
  - Blood pressure fluctuation [Unknown]
  - Illness [Unknown]
  - Malaise [Unknown]
  - Headache [Unknown]
  - Eye swelling [Unknown]
  - Ocular hyperaemia [Unknown]
  - Tongue rough [Unknown]
  - Diarrhoea [Unknown]

NARRATIVE: CASE EVENT DATE: 20221126
